FAERS Safety Report 6134252-7 (Version None)
Quarter: 2009Q1

REPORT INFORMATION
  Report Type: 
  Country: None (occurrence: None)
  Receive Date: 20090325
  Receipt Date: 20090310
  Transmission Date: 20090719
  Serious: Yes (Hospitalization)
  Sender: FDA-Public Use
  Company Number: 2009S1004516

PATIENT
  Age: 69 Year
  Sex: Male
  Weight: 85 kg

DRUGS (8)
  1. AMLODIPINE [Suspect]
     Indication: HYPERTENSION
     Dosage: 5 MG;ORAL
     Route: 048
  2. SIMVASTATIN [Suspect]
     Indication: HYPERLIPIDAEMIA
     Dosage: 40 MG;ORAL
     Route: 048
     Dates: start: 20060101
  3. FALITHROM (PHENPROCOUMON) [Suspect]
     Indication: PERIPHERAL ARTERIAL OCCLUSIVE DISEASE
     Dosage: 1 DF;DAILY;ORAL
     Route: 048
     Dates: start: 20070301, end: 20080822
  4. ASPIRIN [Suspect]
     Indication: PERIPHERAL ARTERIAL OCCLUSIVE DISEASE
     Dosage: 100 MG;DAILY;ORAL
     Route: 048
     Dates: start: 19900101
  5. RAMIPRIL [Concomitant]
  6. TORASEMIDE [Concomitant]
  7. INSULIN PROTAPHAN HUMAN [Concomitant]
  8. BISOPROLOL FUMARATE [Concomitant]

REACTIONS (2)
  - DRUG INTERACTION [None]
  - GASTROINTESTINAL HAEMORRHAGE [None]
